FAERS Safety Report 7298763-3 (Version None)
Quarter: 2011Q1

REPORT INFORMATION
  Report Type: 
  Country: None (occurrence: None)
  Receive Date: 20110217
  Receipt Date: 20110209
  Transmission Date: 20110831
  Serious: Yes (Hospitalization)
  Sender: FDA-Public Use
  Company Number: JP-AMGEN-JPNCT2011009255

PATIENT
  Age: 63 Year
  Sex: Male

DRUGS (3)
  1. IRINOTECAN HYDROCHLORIDE [Concomitant]
     Indication: COLORECTAL CANCER
     Dosage: UNK
     Route: 041
     Dates: start: 20110112, end: 20110201
  2. PANITUMUMAB [Suspect]
     Indication: COLORECTAL CANCER
     Dosage: 300 MG, Q2WK
     Route: 041
     Dates: start: 20110112
  3. LOPERAMIDE [Concomitant]
     Dosage: UNK
     Route: 048
     Dates: start: 20110112

REACTIONS (6)
  - ILEUS [None]
  - DIARRHOEA [None]
  - TUMOUR NECROSIS [None]
  - TUMOUR RUPTURE [None]
  - PERITONITIS [None]
  - ELECTROLYTE IMBALANCE [None]
